FAERS Safety Report 12585276 (Version 2)
Quarter: 2016Q3

REPORT INFORMATION
  Report Type: Spontaneous
  Country: JP (occurrence: JP)
  Receive Date: 20160723
  Receipt Date: 20160818
  Transmission Date: 20161109
  Serious: Yes (Other)
  Sender: FDA-Public Use
  Company Number: JP-009507513-1607JPN008581

PATIENT
  Age: 81 Year
  Sex: Male

DRUGS (3)
  1. DOPS [Suspect]
     Active Substance: DROXIDOPA
     Dosage: 100 MG, ONCE
     Route: 048
  2. MENESIT TABLETS - 100 [Suspect]
     Active Substance: CARBIDOPA\LEVODOPA
     Dosage: 300 MG, ONCE
     Route: 048
  3. COMTAN [Suspect]
     Active Substance: ENTACAPONE
     Dosage: 200 MG, ONCE
     Route: 048

REACTIONS (2)
  - Circulatory collapse [Unknown]
  - Pleural effusion [Unknown]
